FAERS Safety Report 10885709 (Version 2)
Quarter: 2015Q1

REPORT INFORMATION
  Report Type: Spontaneous
  Country: GB (occurrence: GB)
  Receive Date: 20150304
  Receipt Date: 20150319
  Transmission Date: 20150721
  Serious: Yes (Hospitalization)
  Sender: FDA-Public Use
  Company Number: GB-WATSON-2015-03715

PATIENT
  Sex: Female

DRUGS (3)
  1. SODIUM CHLORIDE (UNKNOWN) [Suspect]
     Active Substance: SODIUM CHLORIDE
     Indication: PRODUCT USED FOR UNKNOWN INDICATION
     Dosage: 40 ML, UNK (0.9 %)
     Route: 058
  2. WATER FOR INJECTION [Suspect]
     Active Substance: WATER
     Indication: PRODUCT USED FOR UNKNOWN INDICATION
     Dosage: UNK
     Route: 065
  3. DEFEROXAMINE MESYLATE (WATSON LABORATORIES) [Suspect]
     Active Substance: DEFEROXAMINE MESYLATE
     Indication: PRODUCT USED FOR UNKNOWN INDICATION
     Dosage: 1.5 G, FIVE DOSES EVERY WEEK
     Route: 058
     Dates: start: 20150112

REACTIONS (2)
  - Blood potassium decreased [Not Recovered/Not Resolved]
  - Blood potassium decreased [Recovered/Resolved with Sequelae]

NARRATIVE: CASE EVENT DATE: 2014
